FAERS Safety Report 13664658 (Version 1)
Quarter: 2017Q2

REPORT INFORMATION
  Report Type: Spontaneous
  Country: GB (occurrence: GB)
  Receive Date: 20170619
  Receipt Date: 20170619
  Transmission Date: 20170830
  Serious: Yes (Hospitalization)
  Sender: FDA-Public Use
  Company Number: GB-JNJFOC-20170614362

PATIENT
  Age: 73 Year
  Sex: Male

DRUGS (1)
  1. REMICADE [Suspect]
     Active Substance: INFLIXIMAB
     Indication: CROHN^S DISEASE
     Route: 042
     Dates: start: 20170501

REACTIONS (4)
  - Syncope [Unknown]
  - Infusion related reaction [Unknown]
  - Chest pain [Unknown]
  - Rash generalised [Unknown]

NARRATIVE: CASE EVENT DATE: 20170501
